FAERS Safety Report 5905255-X (Version None)
Quarter: 2008Q4

REPORT INFORMATION
  Report Type: 
  Country: None (occurrence: None)
  Receive Date: 20081001
  Receipt Date: 20080924
  Transmission Date: 20090506
  Serious: Yes (Hospitalization)
  Sender: FDA-Public Use
  Company Number: US-PFIZER INC-2008066242

PATIENT
  Sex: Male

DRUGS (15)
  1. IRINOTECAN HCL [Suspect]
     Indication: GLIOBLASTOMA MULTIFORME
     Dosage: DAILY DOSE:245MG-FREQ:FREQUENCY: EVERY 2 WEEKS
     Route: 042
     Dates: start: 20080505
  2. INVESTIGATIONAL DRUG [Suspect]
     Indication: GLIOBLASTOMA MULTIFORME
     Dosage: DAILY DOSE:76MG-FREQ:FREQUENCY: 1/1 WEEK
     Route: 042
     Dates: start: 20080505
  3. CALCIUM WITH VITAMIN D [Concomitant]
     Dates: start: 20080331
  4. METFORMIN HCL [Concomitant]
     Dates: start: 20080530
  5. NEUTRA-PHOS [Concomitant]
     Dates: start: 20080609
  6. BACTRIM DS [Concomitant]
     Dates: start: 20080519
  7. DEPAKOTE [Concomitant]
     Dates: start: 20080422
  8. DECADRON [Concomitant]
     Dates: start: 20080417
  9. VICODIN [Concomitant]
     Dates: start: 20020101
  10. MULTI-VITAMINS [Concomitant]
     Dates: start: 20050101
  11. PERCOCET [Concomitant]
     Dates: start: 20071230
  12. ZOFRAN [Concomitant]
  13. ATROPINE [Concomitant]
     Dates: start: 20080505
  14. PEPTO-BISMOL [Concomitant]
     Dates: start: 20080517
  15. LOVAZA [Concomitant]
     Dates: start: 20050101

REACTIONS (1)
  - CONVULSION [None]
